FAERS Safety Report 15960728 (Version 19)
Quarter: 2020Q2

REPORT INFORMATION
  Report Type: Report from Study
  Country: CN (occurrence: CN)
  Receive Date: 20190214
  Receipt Date: 20200617
  Transmission Date: 20200713
  Serious: Yes (Hospitalization)
  Sender: FDA-Public Use
  Company Number: CN-ROCHE-2263343

PATIENT
  Age: 37 Year
  Sex: Male
  Weight: 82 kg

DRUGS (17)
  1. ATEZOLIZUMAB. [Suspect]
     Active Substance: ATEZOLIZUMAB
     Indication: HEPATOCELLULAR CARCINOMA
     Dosage: ON 17/FEB/2019, HE RECEIVED THE LAST DOSE  OF ATEZOLIZUMAB 1200 MG FOR PROTEINURIA.?ON 21/NOV/2018,
     Route: 042
     Dates: start: 20181029
  2. ENTECAVIR. [Concomitant]
     Active Substance: ENTECAVIR
     Indication: CHRONIC HEPATITIS B
     Route: 065
     Dates: start: 20171120
  3. GLUTATHIONE [Concomitant]
     Active Substance: GLUTATHIONE
     Indication: HEPATITIS
     Dosage: BUCCAL TABLET
     Route: 065
     Dates: start: 20190117
  4. BEVACIZUMAB. [Suspect]
     Active Substance: BEVACIZUMAB
     Indication: HEPATOCELLULAR CARCINOMA
     Dosage: ON 21/NOV/2018, HE RECEIVED THE LAST DOSE OF BEVACIZUMAB 1320 MG FOR PROTEINURIA.?DATE OF MOST RECEN
     Route: 042
     Dates: start: 20181029
  5. FILGRASTIM [Concomitant]
     Active Substance: FILGRASTIM
     Indication: WHITE BLOOD CELL COUNT INCREASED
     Route: 065
     Dates: start: 20190117
  6. FILGRASTIM [Concomitant]
     Active Substance: FILGRASTIM
     Route: 065
     Dates: start: 20190214, end: 20190216
  7. AMLODIPINE [Concomitant]
     Active Substance: AMLODIPINE BESYLATE
     Route: 065
     Dates: start: 20190213
  8. AMOXICILLIN/CLAVULANIC ACID [Concomitant]
     Active Substance: AMOXICILLIN\CLAVULANIC ACID
     Route: 065
     Dates: start: 20181210, end: 20181217
  9. DIAMMONIUM GLYCYRRHIZINATE [Concomitant]
     Active Substance: HERBALS\DIAMMONIUM GLYCYRRHIZINATE
     Indication: HEPATITIS
     Route: 065
     Dates: start: 20190209
  10. CEFRADINE [Concomitant]
     Active Substance: CEPHRADINE
     Indication: INFECTION
     Route: 065
     Dates: start: 20190107, end: 20190108
  11. SODIUM CHLORIDE. [Concomitant]
     Active Substance: SODIUM CHLORIDE
     Route: 065
     Dates: start: 20181211, end: 20181218
  12. AMOXICILLIN/CLAVULANIC ACID [Concomitant]
     Active Substance: AMOXICILLIN\CLAVULANIC ACID
     Indication: INFECTION
     Route: 065
     Dates: start: 20190105, end: 20190106
  13. GLUCOSE [Concomitant]
     Active Substance: DEXTROSE
     Route: 065
     Dates: start: 20181211, end: 20181218
  14. METRONIDAZOLE. [Concomitant]
     Active Substance: METRONIDAZOLE
     Route: 065
     Dates: start: 20190105, end: 20190111
  15. POTASSIUM ASPARTATE [Concomitant]
     Active Substance: POTASSIUM ASPARTATE
     Route: 065
     Dates: start: 20181211, end: 20181218
  16. METRONIDAZOLE. [Concomitant]
     Active Substance: METRONIDAZOLE
     Indication: INFECTION
     Route: 065
     Dates: start: 20181212, end: 20190116
  17. CLINDAMYCIN HYDROCHLORIDE. [Concomitant]
     Active Substance: CLINDAMYCIN HYDROCHLORIDE
     Indication: INFECTION
     Route: 065
     Dates: start: 20181224, end: 20181228

REACTIONS (2)
  - Hypoproteinaemia [Recovered/Resolved]
  - Proteinuria [Not Recovered/Not Resolved]

NARRATIVE: CASE EVENT DATE: 20181211
